FAERS Safety Report 4791678-1 (Version None)
Quarter: 2005Q4

REPORT INFORMATION
  Report Type: 
  Country: None (occurrence: None)
  Receive Date: 20051007
  Receipt Date: 20050825
  Transmission Date: 20060501
  Serious: Yes (Hospitalization)
  Sender: FDA-Public Use
  Company Number: 2005/UW11619

PATIENT
  Age: 61 Year
  Sex: Female

DRUGS (11)
  1. LITHIUM [Suspect]
     Indication: BIPOLAR DISORDER
     Dosage: 600MG PER DAY
     Route: 048
     Dates: start: 20050802, end: 20050802
  2. LAMOTRIGINE [Concomitant]
     Indication: DEPRESSION
     Dates: start: 20050401
  3. ELAVIL [Concomitant]
     Dates: start: 19800101
  4. CYMBALTA [Concomitant]
     Indication: DEPRESSION
  5. AMITRIPTYLINE HCL [Concomitant]
     Indication: PROPHYLAXIS
  6. VITAMIN E [Concomitant]
     Indication: ROUTINE HEALTH MAINTENANCE
  7. MULTI-VITAMIN [Concomitant]
     Indication: ROUTINE HEALTH MAINTENANCE
  8. UNKNOWN STUDY DRUG [Concomitant]
     Indication: ROUTINE HEALTH MAINTENANCE
  9. UNKNOWN [Concomitant]
     Indication: WEIGHT DECREASED
  10. TILACTASE [Concomitant]
     Indication: LACTOSE INTOLERANCE
  11. LOPERAMIDE [Concomitant]
     Indication: IRRITABLE BOWEL SYNDROME

REACTIONS (6)
  - CONVERSION DISORDER [None]
  - HEADACHE [None]
  - NAUSEA [None]
  - RETCHING [None]
  - SUICIDAL IDEATION [None]
  - TENSION HEADACHE [None]
